FAERS Safety Report 17665082 (Version 1)
Quarter: 2020Q2

REPORT INFORMATION
  Report Type: Spontaneous
  Country: US (occurrence: US)
  Receive Date: 20200413
  Receipt Date: 20200413
  Transmission Date: 20200713
  Serious: No
  Sender: FDA-Public Use
  Company Number: None

PATIENT
  Age: 60 Year
  Sex: Female
  Weight: 56.07 kg

DRUGS (10)
  1. HYDROCODONE - ACETAMINOPHEN 7.5 - 325MG, ORAL [Concomitant]
  2. CAPECITABINE. [Suspect]
     Active Substance: CAPECITABINE
     Indication: BREAST CANCER
     Route: 048
     Dates: start: 20190621, end: 20200413
  3. AMOXICILLIN 500MG ,ORAL [Concomitant]
  4. ASPIRIN 81MG, ORAL [Concomitant]
  5. FISH OIL BURPLESS 1000 MG, ORAL [Concomitant]
  6. SPIRIVA HANDIHALER 18 MCG, INHALER [Concomitant]
  7. GABAPENTIN, 300MG, ORAL [Concomitant]
  8. MECLIZINE 25MG, ORAL [Concomitant]
  9. ATORVASTATIN 40MG, ORAL [Concomitant]
  10. VITAMIN D 1000 U, ORAL [Concomitant]

REACTIONS (1)
  - Disease progression [None]

NARRATIVE: CASE EVENT DATE: 20200413
